FAERS Safety Report 4305290-1 (Version None)
Quarter: 2004Q1

REPORT INFORMATION
  Report Type: 
  Country: None (occurrence: None)
  Receive Date: 20040226
  Receipt Date: 20030224
  Transmission Date: 20041129
  Serious: No
  Sender: FDA-Public Use
  Company Number: US-BRISTOL-MYERS SQUIBB COMPANY-12194478

PATIENT
  Age: 74 Year
  Sex: Male
  Weight: 73 kg

DRUGS (5)
  1. TAXOL [Suspect]
     Indication: BLADDER CANCER
     Route: 042
     Dates: start: 20030221, end: 20030221
  2. KYTRIL [Concomitant]
     Route: 048
  3. DECADRON [Concomitant]
     Route: 042
  4. BENADRYL [Concomitant]
     Route: 042
  5. PEPCID [Concomitant]
     Route: 042

REACTIONS (1)
  - EXTRAVASATION [None]
